FAERS Safety Report 4277395-5 (Version None)
Quarter: 2004Q1

REPORT INFORMATION
  Report Type: 
  Country: None (occurrence: None)
  Receive Date: 20040121
  Receipt Date: 20040109
  Transmission Date: 20041129
  Serious: Yes (Hospitalization)
  Sender: FDA-Public Use
  Company Number: US-SHR-03-018543

PATIENT
  Age: 52 Year
  Sex: Female
  Weight: 136.1 kg

DRUGS (4)
  1. BETASERON [Suspect]
     Indication: MULTIPLE SCLEROSIS
     Dosage: 2 MIU, EVERY 2D,SUBCUTANEOUS
     Route: 058
     Dates: start: 20031120, end: 20031210
  2. PROZAC [Concomitant]
  3. ALLEGRA [Concomitant]
  4. FLONASE [Concomitant]

REACTIONS (6)
  - CARDIAC FAILURE CONGESTIVE [None]
  - CORONARY ARTERY OCCLUSION [None]
  - FATIGUE [None]
  - MYOCARDIAL INFARCTION [None]
  - PAIN IN JAW [None]
  - PNEUMONIA [None]
